FAERS Safety Report 12379138 (Version 1)
Quarter: 2016Q2

REPORT INFORMATION
  Report Type: Spontaneous
  Country: FI (occurrence: FI)
  Receive Date: 20160517
  Receipt Date: 20160517
  Transmission Date: 20160815
  Serious: Yes (Hospitalization, Other)
  Sender: FDA-Public Use
  Company Number: FI-GILEAD-2016-0211073

PATIENT
  Age: 61 Year
  Sex: Male
  Weight: 62 kg

DRUGS (6)
  1. ZYDELIG [Suspect]
     Active Substance: IDELALISIB
     Indication: CHRONIC LYMPHOCYTIC LEUKAEMIA
     Dosage: 150 MG, BID
     Route: 065
     Dates: start: 20151201, end: 20160316
  2. SOMAC [Concomitant]
     Active Substance: PANTOPRAZOLE SODIUM
  3. FINASTERID [Concomitant]
  4. PARACETAMOL [Concomitant]
     Active Substance: ACETAMINOPHEN
  5. HISTEC [Concomitant]
  6. RITUXIMAB [Concomitant]
     Active Substance: RITUXIMAB
     Indication: CHRONIC LYMPHOCYTIC LEUKAEMIA
     Dosage: UNK
     Route: 058
     Dates: start: 20151201, end: 20160316

REACTIONS (5)
  - Electrolyte imbalance [Unknown]
  - Lung infection [Unknown]
  - Diarrhoea [Recovering/Resolving]
  - Pyrexia [Unknown]
  - Abdominal pain [Not Recovered/Not Resolved]

NARRATIVE: CASE EVENT DATE: 20160312
